FAERS Safety Report 9776957 (Version 1)
Quarter: 2013Q4

REPORT INFORMATION
  Report Type: Spontaneous
  Country: US (occurrence: US)
  Receive Date: 20131221
  Receipt Date: 20131221
  Transmission Date: 20140711
  Serious: Yes (Other)
  Sender: FDA-Public Use
  Company Number: 2013SP004172

PATIENT
  Age: 79 Year
  Sex: Female
  Weight: 58.97 kg

DRUGS (1)
  1. VANCOMYCIN [Suspect]
     Indication: DEVICE RELATED INFECTION
     Route: 042

REACTIONS (1)
  - Red man syndrome [Recovered/Resolved]
